FAERS Safety Report 4888086-1 (Version None)
Quarter: 2006Q1

REPORT INFORMATION
  Report Type: 
  Country: None (occurrence: None)
  Receive Date: 20060123
  Receipt Date: 20051005
  Transmission Date: 20060701
  Serious: Yes (Hospitalization, Disabling)
  Sender: FDA-Public Use
  Company Number: US-MERCK-0510USA04509

PATIENT
  Age: 46 Year
  Sex: Female
  Weight: 95 kg

DRUGS (13)
  1. NEXIUM [Concomitant]
     Route: 065
  2. TYLENOL (CAPLET) [Concomitant]
     Route: 065
  3. HYDROCODONE HYDROCHLORIDE [Concomitant]
     Route: 065
  4. VIOXX [Suspect]
     Indication: ARTHRITIS
     Route: 048
     Dates: start: 19990101, end: 20040801
  5. TEGRETOL [Concomitant]
     Route: 065
  6. PAXIL [Concomitant]
     Route: 065
  7. TRAZODONE HYDROCHLORIDE [Concomitant]
     Route: 065
  8. WELLBUTRIN [Concomitant]
     Route: 065
  9. KLONOPIN [Concomitant]
     Route: 065
  10. HYZAAR [Concomitant]
     Route: 065
  11. COMBIVENT [Concomitant]
     Route: 065
  12. ZYRTEC [Concomitant]
     Route: 065
  13. PREMARIN [Concomitant]
     Route: 065

REACTIONS (7)
  - ARTHRITIS [None]
  - ARTHROPATHY [None]
  - BACK DISORDER [None]
  - FALL [None]
  - GALLBLADDER DISORDER [None]
  - NEURALGIC AMYOTROPHY [None]
  - TRANSIENT ISCHAEMIC ATTACK [None]
